FAERS Safety Report 4656837-7 (Version None)
Quarter: 2005Q2

REPORT INFORMATION
  Report Type: 
  Country: None (occurrence: None)
  Receive Date: 20050505
  Receipt Date: 20050426
  Transmission Date: 20051028
  Serious: No
  Sender: FDA-Public Use
  Company Number: 05P-087-0298535-00

PATIENT
  Age: 51 Year
  Sex: Male

DRUGS (2)
  1. TRICOR [Suspect]
     Indication: HYPERLIPIDAEMIA
     Dosage: 150 MG, 1 IN 1 D, PER ORAL
     Route: 048
     Dates: start: 20040821
  2. NATEGLINIDE [Concomitant]

REACTIONS (3)
  - BLOOD CREATININE INCREASED [None]
  - HYPERKALAEMIA [None]
  - RENAL DISORDER [None]
